FAERS Safety Report 16587418 (Version 1)
Quarter: 2019Q3

REPORT INFORMATION
  Report Type: Report from Study
  Country: US (occurrence: US)
  Receive Date: 20190717
  Receipt Date: 20190717
  Transmission Date: 20191004
  Serious: Yes (Death)
  Sender: FDA-Public Use
  Company Number: US-TAIHO ONCOLOGY  INC-EU-2019-02340

PATIENT
  Sex: Female
  Weight: 59.93 kg

DRUGS (10)
  1. VITAMIN B12 [Concomitant]
     Active Substance: CYANOCOBALAMIN
     Dosage: NI
  2. DIPHENOXYLATE-ATROPINE [Concomitant]
     Active Substance: ATROPINE\DIPHENOXYLATE
     Dosage: NI
  3. LONSURF [Suspect]
     Active Substance: TIPIRACIL HYDROCHLORIDE\TRIFLURIDINE
     Indication: SMALL INTESTINE CARCINOMA
  4. GLIPIZIDE. [Concomitant]
     Active Substance: GLIPIZIDE
     Dosage: NI
  5. VITAMIN C [Concomitant]
     Active Substance: ASCORBIC ACID
     Dosage: NI
  6. CEFDINIR. [Concomitant]
     Active Substance: CEFDINIR
     Dosage: NI
  7. LONSURF [Suspect]
     Active Substance: TIPIRACIL HYDROCHLORIDE\TRIFLURIDINE
     Indication: RECTAL CANCER
     Dosage: 2 TABLETS WITH BREAKFAST AND 3 TABLETS WITH DINNER. CURRENT CYCLE NOT REPORTED.
     Route: 048
  8. IRON [Concomitant]
     Active Substance: IRON
     Dosage: NI
  9. METHYLPHENIDATE HYDROCHLORIDE. [Concomitant]
     Active Substance: METHYLPHENIDATE HYDROCHLORIDE
     Dosage: NI
  10. OLANZAPINE. [Concomitant]
     Active Substance: OLANZAPINE
     Dosage: NI

REACTIONS (1)
  - Death [Fatal]
